FAERS Safety Report 18811403 (Version 1)
Quarter: 2021Q1

REPORT INFORMATION
  Report Type: Spontaneous
  Country: US (occurrence: US)
  Receive Date: 20210129
  Receipt Date: 20210129
  Transmission Date: 20210419
  Serious: No
  Sender: FDA-Public Use
  Company Number: US-PFIZER INC-2015144680

PATIENT
  Age: 63 Year
  Sex: Female

DRUGS (1)
  1. PREMPRO [Suspect]
     Active Substance: ESTROGENS, CONJUGATED\MEDROXYPROGESTERONE ACETATE
     Indication: HOT FLUSH
     Dosage: 2 DF (QUANTITY FOR 90 DAYS: 168/(ESTROGENS CONJUGATED?0.625 MG, MEDROXYPROGESTERONE ACETATE?2.5 MG))
     Route: 048

REACTIONS (2)
  - Therapeutic response unexpected [Unknown]
  - Weight increased [Unknown]
